FAERS Safety Report 17248688 (Version 2)
Quarter: 2020Q4

REPORT INFORMATION
  Report Type: Report from Study
  Country: JP (occurrence: JP)
  Receive Date: 20200108
  Receipt Date: 20201020
  Transmission Date: 20210113
  Serious: Yes (Hospitalization)
  Sender: FDA-Public Use
  Company Number: JP-JNJFOC-20180509163

PATIENT
  Age: 79 Year
  Sex: Male
  Weight: 78 kg

DRUGS (15)
  1. TRAZENTA [Concomitant]
     Active Substance: LINAGLIPTIN
     Indication: DIABETES MELLITUS
     Dosage: DAILY DOSE 5 MG
     Route: 048
  2. VOGLIBOSE [Concomitant]
     Active Substance: VOGLIBOSE
     Indication: DIABETES MELLITUS
     Dosage: DAILY DOSE .6 MG
     Route: 048
  3. ACETYLSALICYLIC ACID [Suspect]
     Active Substance: ASPIRIN
     Indication: THROMBOSIS PROPHYLAXIS
     Dosage: 100 MG, QD
     Route: 048
     Dates: start: 20170725, end: 20180414
  4. ACETYLSALICYLIC ACID [Suspect]
     Active Substance: ASPIRIN
     Indication: PERIPHERAL REVASCULARISATION
  5. ADALAT [Concomitant]
     Active Substance: NIFEDIPINE
     Indication: HYPERTENSION
     Dosage: DAILY DOSE 40 MG
     Route: 048
  6. ARGAMATE [Concomitant]
     Active Substance: CALCIUM POLYSTYRENE SULFONATE
     Indication: HYPERKALAEMIA
     Dosage: DAILY DOSE 50 G
     Route: 048
  7. ALDACTONE-A [Concomitant]
     Active Substance: SPIRONOLACTONE
     Indication: HYPERTENSION
     Dosage: DAILY DOSE 50 MG
     Route: 048
  8. CARDENALIN [Concomitant]
     Active Substance: DOXAZOSIN MESYLATE
     Indication: HYPERTENSION
     Dosage: DAILY DOSE 1 MG
     Route: 048
  9. RIVAROXABAN [Suspect]
     Active Substance: RIVAROXABAN
     Indication: PERIPHERAL ARTERIAL OCCLUSIVE DISEASE
  10. RIVAROXABAN [Suspect]
     Active Substance: RIVAROXABAN
     Indication: PERIPHERAL REVASCULARISATION
  11. ACETYLSALICYLIC ACID [Suspect]
     Active Substance: ASPIRIN
     Indication: PERIPHERAL ARTERIAL OCCLUSIVE DISEASE
     Dosage: 100 MG, QD
     Route: 048
     Dates: start: 20180627
  12. RIVAROXABAN [Suspect]
     Active Substance: RIVAROXABAN
     Indication: THROMBOSIS PROPHYLAXIS
     Dosage: 2.5 MG, BID
     Route: 048
     Dates: start: 20170724, end: 20180414
  13. GASMOTIN [Concomitant]
     Active Substance: MOSAPRIDE CITRATE
     Indication: PROPHYLAXIS
     Dosage: DAILY DOSE 15 MG
     Route: 048
  14. LASIX [Concomitant]
     Active Substance: FUROSEMIDE
     Indication: HYPERTENSION
     Dosage: DAILY DOSE 20 MG
     Route: 048
  15. LANSOPRAZOLE. [Concomitant]
     Active Substance: LANSOPRAZOLE
     Indication: PROPHYLAXIS
     Dosage: DAILY DOSE 15 MG
     Route: 048

REACTIONS (1)
  - Renal impairment [Recovering/Resolving]

NARRATIVE: CASE EVENT DATE: 20180414
